FAERS Safety Report 8125268-X (Version None)
Quarter: 2012Q1

REPORT INFORMATION
  Report Type: 
  Country: None (occurrence: None)
  Receive Date: 20120206
  Receipt Date: 20120123
  Transmission Date: 20120608
  Serious: Yes (Other)
  Sender: FDA-Public Use
  Company Number: IL-2012-0463

PATIENT
  Age: 67 Year
  Sex: Male

DRUGS (2)
  1. NAVELBINE [Suspect]
     Indication: NON-SMALL CELL LUNG CANCER
     Dosage: MG/M2, IV
     Route: 042
  2. CISPLATIN [Suspect]
     Indication: LUNG SQUAMOUS CELL CARCINOMA STAGE I

REACTIONS (4)
  - TACHYCARDIA [None]
  - DYSPNOEA [None]
  - CREPITATIONS [None]
  - CARDIOTOXICITY [None]
